FAERS Safety Report 9786437 (Version 2)
Quarter: 2014Q1

REPORT INFORMATION
  Report Type: Report from Study
  Country: US (occurrence: US)
  Receive Date: 20131227
  Receipt Date: 20140107
  Transmission Date: 20141002
  Serious: Yes (Congenital Anomaly, Other)
  Sender: FDA-Public Use
  Company Number: US-GILEAD-2013-0090447

PATIENT
  Sex: Male
  Weight: 3.9 kg

DRUGS (8)
  1. EMTRICITABINE/TENOFOVIR DISOPROXIL FUMARATE [Suspect]
     Indication: HEPATITIS C
     Dosage: UNK
     Route: 064
     Dates: start: 20130225, end: 20131114
  2. RALTEGRAVIR [Suspect]
     Indication: HEPATITIS C
     Dosage: UNK
     Route: 064
     Dates: start: 20130225, end: 20131114
  3. METHADONE [Suspect]
     Indication: DRUG ABUSE
     Route: 064
  4. HEROIN [Suspect]
     Indication: DRUG ABUSE
     Route: 064
  5. SUBOXONE [Suspect]
     Indication: PRODUCT USED FOR UNKNOWN INDICATION
     Route: 064
  6. DAPSONE [Concomitant]
     Indication: PRODUCT USED FOR UNKNOWN INDICATION
     Route: 064
  7. FOLATE [Concomitant]
     Indication: PRODUCT USED FOR UNKNOWN INDICATION
     Route: 064
  8. CELEXA                             /00582602/ [Concomitant]
     Indication: PRODUCT USED FOR UNKNOWN INDICATION
     Route: 064

REACTIONS (2)
  - Talipes [Unknown]
  - Cryptorchism [Unknown]
